FAERS Safety Report 22004672 (Version 1)
Quarter: 2023Q1

REPORT INFORMATION
  Report Type: Spontaneous
  Country: US (occurrence: None)
  Receive Date: 20230216
  Receipt Date: 20230216
  Transmission Date: 20230418
  Serious: No
  Sender: FDA-Public Use
  Company Number: None

PATIENT
  Age: 41 Year
  Sex: Female

DRUGS (1)
  1. PAXLOVID [Suspect]
     Active Substance: NIRMATRELVIR\RITONAVIR
     Indication: Chronic respiratory disease
     Dosage: FREQUENCY : TWICE A DAY;?
     Route: 048
     Dates: start: 20230213, end: 20230216

REACTIONS (3)
  - Rash erythematous [None]
  - Rash [None]
  - Rash [None]

NARRATIVE: CASE EVENT DATE: 20230216
